FAERS Safety Report 5602268-2 (Version None)
Quarter: 2008Q1

REPORT INFORMATION
  Report Type: 
  Country: None (occurrence: None)
  Receive Date: 20080125
  Receipt Date: 20080121
  Transmission Date: 20080703
  Serious: Yes (Hospitalization, Other)
  Sender: FDA-Public Use
  Company Number: FR-JNJFOC-20071204649

PATIENT
  Age: 47 Year
  Sex: Male

DRUGS (14)
  1. REMICADE [Suspect]
     Route: 042
  2. REMICADE [Suspect]
     Route: 042
  3. REMICADE [Suspect]
     Route: 042
  4. REMICADE [Suspect]
     Route: 042
  5. REMICADE [Suspect]
     Route: 042
  6. REMICADE [Suspect]
     Route: 042
  7. REMICADE [Suspect]
     Indication: PSORIASIS
     Route: 042
  8. NOVORAPID [Concomitant]
     Indication: TYPE 1 DIABETES MELLITUS
     Route: 058
  9. NOVOLOG MIX 70/30 [Concomitant]
     Indication: TYPE 1 DIABETES MELLITUS
     Route: 058
  10. METFORMIN HCL [Concomitant]
     Indication: TYPE 1 DIABETES MELLITUS
     Route: 048
  11. ACTOS [Concomitant]
     Indication: OBESITY
     Route: 048
  12. ACTOS [Concomitant]
     Indication: TYPE 1 DIABETES MELLITUS
     Route: 048
  13. PLAVIX [Concomitant]
     Indication: ARTERIAL DISORDER
  14. TAHOR [Concomitant]
     Indication: HYPERCHOLESTEROLAEMIA

REACTIONS (1)
  - LEGIONELLA INFECTION [None]
